FAERS Safety Report 5896102-3 (Version None)
Quarter: 2008Q3

REPORT INFORMATION
  Report Type: 
  Country: None (occurrence: None)
  Receive Date: 20080924
  Receipt Date: 20080912
  Transmission Date: 20090109
  Serious: Yes (Other)
  Sender: FDA-Public Use
  Company Number: GB-PFIZER INC-2008078080

PATIENT
  Age: 34 Year
  Sex: Female
  Weight: 54.8 kg

DRUGS (2)
  1. CHANTIX [Suspect]
     Route: 048
     Dates: start: 20080524, end: 20080815
  2. CONTRACEPTIVE, UNSPECIFIED [Concomitant]

REACTIONS (3)
  - AGITATED DEPRESSION [None]
  - DEPRESSED MOOD [None]
  - TEARFULNESS [None]
